FAERS Safety Report 8494484-X (Version None)
Quarter: 2012Q3

REPORT INFORMATION
  Report Type: 
  Country: None (occurrence: None)
  Receive Date: 20120709
  Receipt Date: 20120628
  Transmission Date: 20120928
  Serious: No
  Sender: FDA-Public Use
  Company Number: US-JNJFOC-20120517099

PATIENT
  Sex: Female

DRUGS (6)
  1. FENTANYL-100 [Suspect]
     Route: 062
     Dates: start: 20120430, end: 20120527
  2. PENTOXIFYLLINE [Concomitant]
     Indication: HAEMORRHAGE
     Route: 065
     Dates: start: 20120422
  3. METAXALONE [Concomitant]
     Indication: MUSCLE SPASMS
     Route: 065
     Dates: start: 20120423
  4. FENTANYL-100 [Suspect]
     Indication: PAIN
     Route: 062
     Dates: start: 20120502
  5. ALPRAZOLAM [Concomitant]
     Indication: ANXIETY
     Route: 065
     Dates: start: 20120425
  6. NORTRIPTYLINE HYDROCHLORIDE [Concomitant]
     Indication: ANXIETY
     Route: 065
     Dates: start: 20120419

REACTIONS (3)
  - PRODUCT QUALITY ISSUE [None]
  - PAIN [None]
  - WRONG TECHNIQUE IN DRUG USAGE PROCESS [None]
